FAERS Safety Report 6624181-4 (Version None)
Quarter: 2010Q1

REPORT INFORMATION
  Report Type: 
  Country: None (occurrence: None)
  Receive Date: 20100310
  Receipt Date: 20091029
  Transmission Date: 20100710
  Serious: No
  Sender: FDA-Public Use
  Company Number: US-BIOGENIDEC-2009BI034935

PATIENT
  Age: 23 Year
  Sex: Male

DRUGS (1)
  1. AVONEX [Suspect]
     Indication: MULTIPLE SCLEROSIS
     Route: 030
     Dates: start: 20090801

REACTIONS (9)
  - ASTHENIA [None]
  - CHILLS [None]
  - EXCORIATION [None]
  - FACE INJURY [None]
  - FALL [None]
  - JOINT INJURY [None]
  - MALAISE [None]
  - PYREXIA [None]
  - TREMOR [None]
